FAERS Safety Report 10024611 (Version 1)
Quarter: 2014Q1

REPORT INFORMATION
  Report Type: Spontaneous
  Country: US (occurrence: None)
  Receive Date: 20140318
  Receipt Date: 20140318
  Transmission Date: 20141002
  Serious: Yes (Other)
  Sender: FDA-Public Use
  Company Number: 2014P1001990

PATIENT
  Age: 18 Year
  Sex: Female

DRUGS (4)
  1. MYORISAN [Suspect]
     Indication: ACNE
     Dates: start: 20140122, end: 20140210
  2. UNSPECIFIED BIRTH CONTROL PILL [Suspect]
  3. WELLBUTRIN [Concomitant]
  4. LORAZEPAM [Concomitant]

REACTIONS (4)
  - Metrorrhagia [None]
  - Weight increased [None]
  - Mood altered [None]
  - Dry skin [None]
